FAERS Safety Report 5051681-3 (Version None)
Quarter: 2006Q3

REPORT INFORMATION
  Report Type: 
  Country: None (occurrence: None)
  Receive Date: 20060711
  Receipt Date: 20060620
  Transmission Date: 20061208
  Serious: Yes (Other)
  Sender: FDA-Public Use
  Company Number: USA0510111758

PATIENT
  Age: 43 Year
  Sex: Female
  Weight: 80.7 kg

DRUGS (3)
  1. CYMBALTA [Suspect]
     Indication: DEPRESSION
     Dosage: SEE IMAGE
     Dates: start: 20051001, end: 20051001
  2. CYMBALTA [Suspect]
     Indication: DEPRESSION
     Dosage: SEE IMAGE
     Dates: start: 20050719
  3. EXCEDRIN (ACETYLSALICYLIC ACID, CAFFEINE, PARACETAMOL) [Concomitant]

REACTIONS (3)
  - ALANINE AMINOTRANSFERASE INCREASED [None]
  - BLOOD BILIRUBIN DECREASED [None]
  - INTERNATIONAL NORMALISED RATIO DECREASED [None]
